FAERS Safety Report 9008991 (Version 1)
Quarter: 2013Q1

REPORT INFORMATION
  Report Type: Spontaneous
  Country: US (occurrence: US)
  Receive Date: 20130111
  Receipt Date: 20130111
  Transmission Date: 20140127
  Serious: No
  Sender: FDA-Public Use
  Company Number: US-PFIZER INC-2013011482

PATIENT
  Age: 54 Year
  Sex: Female
  Weight: 66.67 kg

DRUGS (5)
  1. EFFEXOR XR [Suspect]
     Indication: MENTAL DISORDER
     Dosage: 300 MG, DAILY
     Route: 048
  2. VENLAFAXINE HYDROCHLORIDE [Suspect]
     Dosage: UNK
  3. GEODON [Concomitant]
     Indication: PSYCHOTIC DISORDER
     Dosage: 60 MG, DAILY
  4. ABILIFY [Concomitant]
     Dosage: UNK
  5. LORAZEPAM [Concomitant]
     Indication: DEPRESSION
     Dosage: 1 MG, 3X/DAY

REACTIONS (6)
  - Drug hypersensitivity [Unknown]
  - Rash [Unknown]
  - Pruritus [Unknown]
  - Urticaria [Unknown]
  - Product colour issue [Unknown]
  - Drug ineffective [Unknown]
